FAERS Safety Report 5421137-4 (Version None)
Quarter: 2007Q3

REPORT INFORMATION
  Report Type: 
  Country: None (occurrence: None)
  Receive Date: 20070718
  Receipt Date: 20061211
  Transmission Date: 20080115
  Serious: Yes (Hospitalization)
  Sender: FDA-Public Use
  Company Number: 2006152374

PATIENT
  Age: 42 Year
  Sex: Female

DRUGS (1)
  1. CELEBREX [Suspect]
     Indication: BACK INJURY
     Dosage: (200 MG)
     Dates: start: 20040527, end: 20040722

REACTIONS (1)
  - CEREBROVASCULAR ACCIDENT [None]
